FAERS Safety Report 7383776-3 (Version None)
Quarter: 2011Q1

REPORT INFORMATION
  Report Type: 
  Country: None (occurrence: None)
  Receive Date: 20110322
  Receipt Date: 20100317
  Transmission Date: 20110831
  Serious: Yes (Other)
  Sender: FDA-Public Use
  Company Number: 10-119

PATIENT
  Age: 62 Year
  Sex: Female

DRUGS (10)
  1. LESCOL [Concomitant]
  2. CENTRUM SILVER [Concomitant]
  3. ESTRADIOL [Concomitant]
  4. ALEVE [Suspect]
     Indication: ARTHRITIS
     Dosage: ORAL
     Route: 048
     Dates: start: 20100312
  5. ALEVE [Suspect]
     Indication: ARTHRITIS
     Dosage: ORAL
     Route: 048
     Dates: start: 20090101
  6. LISINOPRIL [Concomitant]
  7. WALGREEN'S CALCIUM PLUS D [Concomitant]
  8. ACTONEL [Concomitant]
  9. ALEVE [Suspect]
     Indication: SINUS HEADACHE
     Dosage: ORAL
     Route: 048
     Dates: start: 20100312
  10. ALEVE [Suspect]
     Indication: HEADACHE
     Dosage: ORAL
     Route: 048
     Dates: start: 20100312

REACTIONS (3)
  - OEDEMA PERIPHERAL [None]
  - RASH PRURITIC [None]
  - NO REACTION ON PREVIOUS EXPOSURE TO DRUG [None]
